FAERS Safety Report 7778664-4 (Version None)
Quarter: 2011Q3

REPORT INFORMATION
  Report Type: 
  Country: None (occurrence: None)
  Receive Date: 20110926
  Receipt Date: 20110914
  Transmission Date: 20111222
  Serious: Yes (Other)
  Sender: FDA-Public Use
  Company Number: US-BAYER-2011-022597

PATIENT
  Age: 46 Year
  Sex: Female
  Weight: 79.365 kg

DRUGS (7)
  1. SERTRALINE HYDROCHLORIDE [Concomitant]
     Indication: ANXIETY
  2. DROSPIRENONE AND ETHINYL ESTRADIOL [Suspect]
     Indication: PREMENSTRUAL SYNDROME
     Dosage: UNK
     Dates: start: 20090428, end: 20090615
  3. SERTRALINE HYDROCHLORIDE [Concomitant]
     Indication: PREMENSTRUAL SYNDROME
     Dosage: UNK
     Dates: start: 20080301
  4. BENZOYL [Concomitant]
     Indication: ACNE
     Dosage: UNK
     Dates: start: 20011201
  5. SERTRALINE HYDROCHLORIDE [Concomitant]
  6. IBUPROFEN [Concomitant]
     Dosage: UNK
     Dates: start: 20090401, end: 20091201
  7. TRAMADOL [Concomitant]
     Indication: ARTHRALGIA
     Dosage: UNK
     Dates: start: 20090618

REACTIONS (6)
  - PAIN IN EXTREMITY [None]
  - PAIN [None]
  - DYSPNOEA [None]
  - PULMONARY EMBOLISM [None]
  - INJURY [None]
  - CHEST PAIN [None]
